FAERS Safety Report 5831767-3 (Version None)
Quarter: 2008Q3

REPORT INFORMATION
  Report Type: 
  Country: None (occurrence: None)
  Receive Date: 20080803
  Receipt Date: 20080725
  Transmission Date: 20090109
  Serious: Yes (Hospitalization, Other)
  Sender: FDA-Public Use
  Company Number: PHHY2008FR15591

PATIENT
  Age: 65 Year
  Sex: Male

DRUGS (5)
  1. VOLTAREN [Suspect]
     Indication: BACK PAIN
     Dosage: UNK
     Dates: start: 20080711, end: 20080717
  2. ASPIRIN [Concomitant]
     Dosage: 75 MG/ DAY
  3. CELECTOL [Concomitant]
  4. BIPRETERAX [Concomitant]
  5. DEXTROPROPOXYPHENE/ PARACETAMOL [Concomitant]

REACTIONS (9)
  - ANAEMIA [None]
  - ASTHENIA [None]
  - BONE LESION [None]
  - DYSPNOEA [None]
  - FAECES DISCOLOURED [None]
  - GASTRITIS HAEMORRHAGIC [None]
  - PALLOR [None]
  - SWELLING [None]
  - THROMBOCYTOPENIA [None]
